FAERS Safety Report 15701019 (Version 1)
Quarter: 2018Q4

REPORT INFORMATION
  Report Type: Spontaneous
  Country: US (occurrence: US)
  Receive Date: 20181207
  Receipt Date: 20181207
  Transmission Date: 20190205
  Serious: Yes (Other)
  Sender: FDA-Public Use
  Company Number: PHHY2018US172715

PATIENT
  Age: 42 Year
  Sex: Female

DRUGS (4)
  1. METHOTREXATE. [Suspect]
     Active Substance: METHOTREXATE
     Dosage: 25 MG/M2, UNK
     Route: 030
  2. METHOTREXATE. [Suspect]
     Active Substance: METHOTREXATE
     Indication: PLACENTA ACCRETA
     Dosage: 50 MG/M2, UNK
     Route: 030
  3. IRON SUCROSE [Concomitant]
     Active Substance: IRON SUCROSE
     Indication: HAEMOGLOBIN DECREASED
     Dosage: UNK UNK, QOD
     Route: 065
  4. ERYTHROPOIETIN [Concomitant]
     Active Substance: ERYTHROPOIETIN
     Indication: HAEMOGLOBIN DECREASED
     Route: 065

REACTIONS (2)
  - Transaminases increased [Unknown]
  - Product use in unapproved indication [Unknown]
